FAERS Safety Report 8580104-2 (Version None)
Quarter: 2012Q2

REPORT INFORMATION
  Report Type: 
  Country: None (occurrence: None)
  Receive Date: 20120423
  Receipt Date: 20100329
  Transmission Date: 20120825
  Serious: Yes (Other)
  Sender: FDA-Public Use
  Company Number: PHHY2010US20568

PATIENT
  Age: 53 Year
  Sex: Male

DRUGS (1)
  1. EXJADE [Suspect]
     Dosage: 1750 MG, QD, ORAL
     Route: 048
     Dates: end: 20100101

REACTIONS (1)
  - LIVER FUNCTION TEST ABNORMAL [None]
